FAERS Safety Report 8087593-0 (Version None)
Quarter: 2012Q1

REPORT INFORMATION
  Report Type: 
  Country: None (occurrence: None)
  Receive Date: 20120128
  Receipt Date: 20110524
  Transmission Date: 20120608
  Serious: No
  Sender: FDA-Public Use
  Company Number: US-ABBOTT-11P-163-0728497-00

PATIENT
  Sex: Male
  Weight: 86.26 kg

DRUGS (2)
  1. METHOTREXATE [Concomitant]
     Indication: RHEUMATOID ARTHRITIS
     Dates: end: 20110501
  2. HUMIRA [Suspect]
     Indication: RHEUMATOID ARTHRITIS
     Dates: start: 20110401, end: 20110506

REACTIONS (9)
  - PYREXIA [None]
  - FATIGUE [None]
  - APHASIA [None]
  - BALANCE DISORDER [None]
  - FEELING ABNORMAL [None]
  - PRODUCTIVE COUGH [None]
  - NASOPHARYNGITIS [None]
  - TREMOR [None]
  - DYSPNOEA [None]
